FAERS Safety Report 16145527 (Version 1)
Quarter: 2019Q2

REPORT INFORMATION
  Report Type: Spontaneous
  Country: AU (occurrence: AU)
  Receive Date: 20190402
  Receipt Date: 20190402
  Transmission Date: 20190711
  Serious: Yes (Death, Other)
  Sender: FDA-Public Use
  Company Number: AU-SA-2019SA087349

PATIENT

DRUGS (3)
  1. 5 FLUORO URACIL [Suspect]
     Active Substance: FLUOROURACIL
     Dosage: UNK UNK, QCY
     Route: 064
  2. OXALIPLATIN. [Suspect]
     Active Substance: OXALIPLATIN
     Dosage: UNK UNK, QCY
     Route: 064
  3. LEUCOVORINE [Suspect]
     Active Substance: LEUCOVORIN
     Dosage: UNK UNK, QCY
     Route: 064

REACTIONS (5)
  - Stillbirth [Fatal]
  - Placental insufficiency [Fatal]
  - Foetal placental thrombosis [Fatal]
  - Foetal exposure during pregnancy [Unknown]
  - Premature delivery [Unknown]
